FAERS Safety Report 21239351 (Version 1)
Quarter: 2022Q3

REPORT INFORMATION
  Report Type: Spontaneous
  Country: FI (occurrence: FI)
  Receive Date: 20220822
  Receipt Date: 20220822
  Transmission Date: 20221026
  Serious: Yes (Other)
  Sender: FDA-Public Use
  Company Number: FI-EXELTIS PHARMACEUTICAL HOLDING, S.L.-2208FI03218

PATIENT
  Age: 30 Year
  Sex: Female

DRUGS (2)
  1. DROSPIRENONE [Suspect]
     Active Substance: DROSPIRENONE
     Indication: Heavy menstrual bleeding
  2. DROSPIRENONE [Suspect]
     Active Substance: DROSPIRENONE
     Indication: Dysmenorrhoea

REACTIONS (3)
  - Ovarian cyst [Unknown]
  - Ovarian neoplasm [Unknown]
  - Off label use [Unknown]
